FAERS Safety Report 8119584-5 (Version None)
Quarter: 2012Q1

REPORT INFORMATION
  Report Type: 
  Country: None (occurrence: None)
  Receive Date: 20120207
  Receipt Date: 20120202
  Transmission Date: 20120608
  Serious: Yes (Other)
  Sender: FDA-Public Use
  Company Number: PHHY2011CA107798

PATIENT
  Sex: Female
  Weight: 70 kg

DRUGS (8)
  1. AVAPRO [Concomitant]
     Dosage: 150 MG, DAILY
  2. MELOXICAM [Concomitant]
     Dosage: 15 MG, DAILY
  3. ARAVA [Concomitant]
     Dosage: 20 MG, DAILY
  4. ZOPICLONE [Concomitant]
     Dosage: 7.5 MG, UNK
  5. ZOLEDRONOC ACID [Suspect]
     Indication: OSTEOPOROSIS
     Dosage: 5 MG/100 ML, YEARLY
     Route: 042
     Dates: start: 20091130
  6. CALCIUM [Concomitant]
     Dosage: 1500 MG, UNK
     Dates: start: 20050101
  7. VITAMIN D [Concomitant]
     Dosage: 2000 MG, DAILY
     Dates: start: 20050101
  8. METHOTREXATE [Concomitant]
     Dosage: 12.5 MG, UNK

REACTIONS (2)
  - LIGAMENT SPRAIN [None]
  - FOOT FRACTURE [None]
